FAERS Safety Report 25853845 (Version 1)
Quarter: 2025Q3

REPORT INFORMATION
  Report Type: Spontaneous
  Country: US (occurrence: None)
  Receive Date: 20250926
  Receipt Date: 20250926
  Transmission Date: 20251020
  Serious: No
  Sender: FDA-CTU
  Company Number: None

PATIENT
  Sex: Male

DRUGS (3)
  1. NUWIQ [Suspect]
     Active Substance: ANTIHEMOPHILIC FACTOR, HUMAN RECOMBINANT
     Indication: Factor VIII deficiency
     Dosage: 4200 IU INTERNATIONAL UNIT(S) DAILY INTRAVENOUS
     Route: 042
     Dates: start: 20250611
  2. HUMATE-P SOL [Concomitant]
  3. NORMAL SALINE FLUSH (10ML) [Concomitant]

REACTIONS (2)
  - Myocardial infarction [None]
  - Therapy change [None]
